FAERS Safety Report 4744182-0 (Version None)
Quarter: 2005Q3

REPORT INFORMATION
  Report Type: 
  Country: None (occurrence: None)
  Receive Date: 20050809
  Receipt Date: 20050729
  Transmission Date: 20060218
  Serious: Yes (Hospitalization)
  Sender: FDA-Public Use
  Company Number: KII-2005-0017812

PATIENT
  Age: 77 Year
  Sex: Female

DRUGS (5)
  1. OXYCONTIN [Suspect]
     Dosage: ORAL
     Route: 048
  2. DIPHENOXYLATE W/ATROPINE SULFATE (ATROPINE SULFATE, DIPHENOXYLATE) [Suspect]
     Dosage: ORAL
     Route: 048
  3. ACETAMINOPHEN AND HYDROCODONE BITARTRATE [Suspect]
     Indication: PAIN
     Dosage: ORAL
     Route: 048
  4. PHENOBARBITAL TAB [Suspect]
     Dosage: ORAL
     Route: 048
  5. BENZODIAZEPINE DERIVATES [Suspect]
     Dosage: SEE TEXT, ORAL
     Route: 048

REACTIONS (7)
  - DIARRHOEA [None]
  - DRUG WITHDRAWAL SYNDROME [None]
  - DYSKINESIA [None]
  - DYSSTASIA [None]
  - DYSTONIA [None]
  - GAIT DISTURBANCE [None]
  - PAIN [None]
